FAERS Safety Report 8799410 (Version 1)
Quarter: 2012Q4

REPORT INFORMATION
  Report Type: Spontaneous
  Country: US (occurrence: None)
  Receive Date: 20120918
  Receipt Date: 20120918
  Transmission Date: 20130627
  Serious: No
  Sender: FDA-Public Use
  Company Number: None

PATIENT
  Age: 81 Year
  Sex: Female
  Weight: 54 kg

DRUGS (2)
  1. VANCOMYCIN [Suspect]
     Indication: BACTEREMIA
     Route: 042
     Dates: start: 20120709, end: 20120711
  2. VANCOMYCIN [Suspect]
     Indication: BACTEREMIA
     Route: 042
     Dates: start: 20120709, end: 20120711

REACTIONS (2)
  - Rash erythematous [None]
  - Pruritus [None]
